FAERS Safety Report 7384516-4 (Version None)
Quarter: 2011Q1

REPORT INFORMATION
  Report Type: 
  Country: None (occurrence: None)
  Receive Date: 20110330
  Receipt Date: 20110321
  Transmission Date: 20110831
  Serious: Yes (Other)
  Sender: FDA-Public Use
  Company Number: FR-ASTRAZENECA-2011SE17226

PATIENT
  Age: 88 Year
  Sex: Male

DRUGS (10)
  1. AMLODIPINE BESYLATE [Concomitant]
  2. ESIDRIX [Concomitant]
  3. EXELON [Concomitant]
     Dates: start: 20100801, end: 20100917
  4. XATRAL [Concomitant]
  5. ZOCOR [Concomitant]
  6. CASODEX [Suspect]
     Indication: PROSTATE CANCER
     Route: 048
     Dates: start: 20100917, end: 20101207
  7. PREVISCAN [Concomitant]
  8. MOPRAL [Concomitant]
     Route: 048
  9. EXELON [Concomitant]
     Dates: start: 20100712, end: 20100801
  10. COZAAR [Concomitant]

REACTIONS (1)
  - THROMBOCYTOPENIA [None]
